FAERS Safety Report 17413558 (Version 1)
Quarter: 2020Q1

REPORT INFORMATION
  Report Type: Spontaneous
  Country: US (occurrence: US)
  Receive Date: 20200213
  Receipt Date: 20200213
  Transmission Date: 20200409
  Serious: No
  Sender: FDA-Public Use
  Company Number: None

PATIENT
  Age: 10 Year
  Sex: Male
  Weight: 36.45 kg

DRUGS (3)
  1. OSELTAMIVIR PHOSPHATE CAPSULES, USP [Suspect]
     Active Substance: OSELTAMIVIR PHOSPHATE
     Indication: INFLUENZA
     Dosage: ?          QUANTITY:1 CAPSULE(S);?
     Route: 048
     Dates: start: 20200211, end: 20200212
  2. VENTOLIN [Concomitant]
     Active Substance: ALBUTEROL SULFATE
  3. ZYRTEC [Concomitant]
     Active Substance: CETIRIZINE HYDROCHLORIDE

REACTIONS (4)
  - Self-injurious ideation [None]
  - Nightmare [None]
  - Hallucination, visual [None]
  - Tremor [None]

NARRATIVE: CASE EVENT DATE: 20200212
